FAERS Safety Report 7600131-9 (Version None)
Quarter: 2011Q2

REPORT INFORMATION
  Report Type: 
  Country: None (occurrence: None)
  Receive Date: 20110629
  Receipt Date: 20110616
  Transmission Date: 20111010
  Serious: Yes (Death, Hospitalization, Other)
  Sender: FDA-Public Use
  Company Number: 2011MA007661

PATIENT
  Age: 23 Year
  Sex: Male

DRUGS (3)
  1. FLUDARABINE PHOSPHATE [Suspect]
     Indication: STEM CELL TRANSPLANT
     Dosage: 750 MG/M 2,
  2. CYCLOPHOSPHAMIDE [Concomitant]
  3. RITUXIMAB [Concomitant]

REACTIONS (14)
  - DEPRESSED LEVEL OF CONSCIOUSNESS [None]
  - DEMYELINATION [None]
  - OPTIC ATROPHY [None]
  - GENERAL PHYSICAL HEALTH DETERIORATION [None]
  - CONFUSIONAL STATE [None]
  - RETINOPATHY [None]
  - RETINAL OEDEMA [None]
  - VISUAL FIELD DEFECT [None]
  - HYDROCEPHALUS [None]
  - BRAIN HERNIATION [None]
  - SUDDEN VISUAL LOSS [None]
  - GLIOSIS [None]
  - TOXICITY TO VARIOUS AGENTS [None]
  - RETINAL HAEMORRHAGE [None]
